FAERS Safety Report 4605982-0 (Version None)
Quarter: 2005Q1

REPORT INFORMATION
  Report Type: 
  Country: None (occurrence: None)
  Receive Date: 20050311
  Receipt Date: 20050307
  Transmission Date: 20050727
  Serious: Yes (Hospitalization)
  Sender: FDA-Public Use
  Company Number: JP-GLAXOSMITHKLINE-B0374091A

PATIENT
  Age: 62 Year
  Sex: Female

DRUGS (4)
  1. PAXIL [Suspect]
     Indication: INSOMNIA
     Dosage: 10MG PER DAY
     Route: 048
     Dates: start: 20040930, end: 20050303
  2. EURODIN [Concomitant]
     Route: 048
  3. AMARYL [Concomitant]
     Route: 048
  4. LIPITOR [Concomitant]
     Route: 048

REACTIONS (5)
  - DIARRHOEA [None]
  - DYSKINESIA [None]
  - HYPONATRAEMIA [None]
  - MEMORY IMPAIRMENT [None]
  - TREMOR [None]
